FAERS Safety Report 9443569 (Version 1)
Quarter: 2013Q3

REPORT INFORMATION
  Report Type: Spontaneous
  Country: US (occurrence: US)
  Receive Date: 20130806
  Receipt Date: 20130806
  Transmission Date: 20140515
  Serious: No
  Sender: FDA-Public Use
  Company Number: US-PFIZER INC-2013226580

PATIENT
  Age: 48 Year
  Sex: Male
  Weight: 69.39 kg

DRUGS (5)
  1. ADVIL [Suspect]
     Indication: LOCAL SWELLING
     Dosage: 200 MG, AS NEEDED
  2. ADVIL [Suspect]
     Indication: PAIN IN EXTREMITY
  3. VITAMIN C [Concomitant]
     Dosage: UNK, ONCE A DAY
  4. ATENOLOL [Concomitant]
     Indication: HYPERTENSION
     Dosage: 50 MG, UNK
  5. SIMVASTATIN [Concomitant]
     Indication: BLOOD CHOLESTEROL ABNORMAL
     Dosage: 20 MG DAILY

REACTIONS (2)
  - Hypersensitivity [Recovered/Resolved]
  - Rash [Recovered/Resolved]
